FAERS Safety Report 10029015 (Version 3)
Quarter: 2014Q2

REPORT INFORMATION
  Report Type: Spontaneous
  Country: US (occurrence: US)
  Receive Date: 20140321
  Receipt Date: 20140417
  Transmission Date: 20141212
  Serious: No
  Sender: FDA-Public Use
  Company Number: US-GILEAD-2014-0097130

PATIENT
  Age: 53 Year
  Sex: Female
  Weight: 63.49 kg

DRUGS (2)
  1. SOVALDI [Suspect]
     Indication: CHRONIC HEPATITIS C
     Dosage: 400 MG, QD
     Route: 048
     Dates: start: 20140210
  2. RIBAVIRIN [Concomitant]
     Indication: CHRONIC HEPATITIS C
     Dosage: 200 MG, BID (AT 3AM, 2PM)
     Route: 048
     Dates: start: 20140210

REACTIONS (3)
  - Transaminases increased [Unknown]
  - Headache [Recovered/Resolved]
  - Somnolence [Recovered/Resolved]
